FAERS Safety Report 23819155 (Version 1)
Quarter: 2024Q2

REPORT INFORMATION
  Report Type: Spontaneous
  Country: US (occurrence: US)
  Receive Date: 20240506
  Receipt Date: 20240506
  Transmission Date: 20240716
  Serious: No
  Sender: FDA-Public Use
  Company Number: US-AUROBINDO-AUR-APL-2023-056721

PATIENT
  Sex: Female

DRUGS (1)
  1. DEXTROMETHORPHAN\GUAIFENESIN [Suspect]
     Active Substance: DEXTROMETHORPHAN\GUAIFENESIN
     Indication: Cough
     Dosage: 1 DOSAGE FORM, TWO TIMES A DAY (1TABLET EVERY 12 HRS)
     Route: 065

REACTIONS (2)
  - Accidental exposure to product [Unknown]
  - Maternal exposure during pregnancy [Unknown]
